FAERS Safety Report 5575977-1 (Version None)
Quarter: 2007Q4

REPORT INFORMATION
  Report Type: 
  Country: None (occurrence: None)
  Receive Date: 20071228
  Receipt Date: 20071219
  Transmission Date: 20080405
  Serious: Yes (Other)
  Sender: FDA-Public Use
  Company Number: PHBS2007JP21325

PATIENT
  Age: 69 Year
  Sex: Female

DRUGS (4)
  1. CYCLOSPORINE [Suspect]
     Indication: DERMATOMYOSITIS
     Dosage: 100 MG/D
     Route: 065
     Dates: start: 20050901, end: 20050901
  2. CYCLOSPORINE [Suspect]
     Dosage: 150 MG/D
     Route: 065
     Dates: start: 20050901, end: 20051001
  3. PREDNISOLONE [Concomitant]
     Dosage: 40 MG/D
     Route: 065
     Dates: start: 20050801
  4. IMMUNE GLOBULIN INTRAVENOUS (HUMAN) [Concomitant]
     Dosage: 20 G/D
     Route: 065

REACTIONS (1)
  - PANCYTOPENIA [None]
